FAERS Safety Report 4876657-8 (Version None)
Quarter: 2006Q1

REPORT INFORMATION
  Report Type: 
  Country: None (occurrence: None)
  Receive Date: 20060110
  Receipt Date: 20041117
  Transmission Date: 20060701
  Serious: Yes (Hospitalization)
  Sender: FDA-Public Use
  Company Number: US-MERCK-0411USA03083

PATIENT
  Age: 65 Year
  Sex: Male
  Weight: 77 kg

DRUGS (5)
  1. VIOXX [Suspect]
     Indication: LUMBAR SPINAL STENOSIS
     Route: 048
     Dates: start: 20000501, end: 20010201
  2. VIOXX [Suspect]
     Route: 065
     Dates: start: 20011201, end: 20040101
  3. VIOXX [Suspect]
     Indication: ROTATOR CUFF SYNDROME
     Route: 048
     Dates: start: 20000501, end: 20010201
  4. VIOXX [Suspect]
     Route: 065
     Dates: start: 20011201, end: 20040101
  5. ASPIRIN [Concomitant]
     Route: 065

REACTIONS (4)
  - CORONARY ARTERY THROMBOSIS [None]
  - INTERVERTEBRAL DISC PROTRUSION [None]
  - MYOCARDIAL INFARCTION [None]
  - SPINAL COLUMN STENOSIS [None]
